FAERS Safety Report 15450158 (Version 1)
Quarter: 2018Q4

REPORT INFORMATION
  Report Type: Spontaneous
  Country: US (occurrence: US)
  Receive Date: 20181001
  Receipt Date: 20181001
  Transmission Date: 20190204
  Serious: Yes (Other)
  Sender: FDA-Public Use
  Company Number: US-PFIZER INC-2018387952

PATIENT
  Age: 48 Year
  Sex: Male
  Weight: 108.8 kg

DRUGS (1)
  1. VIAGRA [Suspect]
     Active Substance: SILDENAFIL CITRATE
     Dosage: UNK

REACTIONS (4)
  - Erection increased [Unknown]
  - Drug effect delayed [Unknown]
  - Ejaculation disorder [Unknown]
  - Semen volume increased [Unknown]
